FAERS Safety Report 15210269 (Version 2)
Quarter: 2019Q1

REPORT INFORMATION
  Report Type: Report from Study
  Country: US (occurrence: US)
  Receive Date: 20180727
  Receipt Date: 20190330
  Transmission Date: 20190417
  Serious: Yes (Other)
  Sender: FDA-Public Use
  Company Number: PHHY2017US140340

PATIENT
  Age: 49 Year
  Sex: Female

DRUGS (1)
  1. GILENYA [Suspect]
     Active Substance: FINGOLIMOD HYDROCHLORIDE
     Indication: MULTIPLE SCLEROSIS
     Dosage: UNK, QD
     Route: 048

REACTIONS (5)
  - Neuralgia [Unknown]
  - Balance disorder [Unknown]
  - Atrioventricular block first degree [Recovered/Resolved]
  - Lymphocyte count decreased [Unknown]
  - Optic neuropathy [Unknown]

NARRATIVE: CASE EVENT DATE: 20170731
